FAERS Safety Report 8306865-5 (Version None)
Quarter: 2012Q2

REPORT INFORMATION
  Report Type: 
  Country: None (occurrence: None)
  Receive Date: 20120424
  Receipt Date: 20120416
  Transmission Date: 20120825
  Serious: Yes (Death, Other)
  Sender: FDA-Public Use
  Company Number: ES-CELGENEUS-144-21880-12041725

PATIENT
  Age: 72 Year
  Sex: Female

DRUGS (10)
  1. REVLIMID [Suspect]
     Dosage: 10 MILLIGRAM
     Route: 048
     Dates: start: 20080401
  2. REVLIMID [Suspect]
     Indication: MULTIPLE MYELOMA
     Dosage: 10 MILLIGRAM
     Route: 048
     Dates: start: 20060101, end: 20060101
  3. REVLIMID [Suspect]
     Dosage: 25 MILLIGRAM
     Route: 048
     Dates: start: 20090401
  4. REVLIMID [Suspect]
     Dosage: 15 MILLIGRAM
     Route: 048
  5. EPOGEN [Concomitant]
     Route: 065
  6. REVLIMID [Suspect]
     Dosage: 5 MILLIGRAM
     Route: 048
     Dates: start: 20060101, end: 20070101
  7. REVLIMID [Suspect]
     Dosage: 25 MILLIGRAM
     Route: 048
     Dates: end: 20091001
  8. DEXAMETHASONE [Concomitant]
     Indication: MULTIPLE MYELOMA
     Route: 065
  9. REVLIMID [Suspect]
     Dosage: 5 MILLIGRAM
     Route: 048
     Dates: start: 20080101
  10. REVLIMID [Suspect]
     Dosage: 25 MILLIGRAM
     Route: 048
     Dates: start: 20091001

REACTIONS (6)
  - RENAL FAILURE [None]
  - DIARRHOEA [None]
  - MULTIPLE MYELOMA [None]
  - ABDOMINAL PAIN [None]
  - THROMBOCYTOPENIA [None]
  - DISEASE RECURRENCE [None]
